FAERS Safety Report 5878314-8 (Version None)
Quarter: 2008Q3

REPORT INFORMATION
  Report Type: 
  Country: None (occurrence: None)
  Receive Date: 20080911
  Receipt Date: 20080830
  Transmission Date: 20090109
  Serious: Yes (Other)
  Sender: FDA-Public Use
  Company Number: US-PFIZER INC-2008073001

PATIENT
  Sex: Female

DRUGS (1)
  1. DILANTIN [Suspect]

REACTIONS (1)
  - BLINDNESS [None]
